FAERS Safety Report 14474705 (Version 1)
Quarter: 2018Q1

REPORT INFORMATION
  Report Type: Spontaneous
  Country: US (occurrence: US)
  Receive Date: 20180201
  Receipt Date: 20180201
  Transmission Date: 20180509
  Serious: Yes (Other)
  Sender: FDA-Public Use
  Company Number: US-WEST-WARD PHARMACEUTICALS CORP.-US-H14001-18-00600

PATIENT
  Age: 65 Year
  Sex: Female

DRUGS (2)
  1. HEPARIN [Suspect]
     Active Substance: HEPARIN SODIUM
     Indication: ANTICOAGULANT THERAPY
     Route: 065
  2. COUMADIN [Concomitant]
     Active Substance: WARFARIN SODIUM
     Indication: PRODUCT USED FOR UNKNOWN INDICATION
     Route: 048

REACTIONS (7)
  - Aphasia [Unknown]
  - Hemiplegia [Unknown]
  - Cerebrovascular accident [Recovering/Resolving]
  - Cerebral artery thrombosis [Unknown]
  - Brain oedema [Unknown]
  - Heparin-induced thrombocytopenia [Unknown]
  - Agitation [Unknown]
